FAERS Safety Report 11403128 (Version 1)
Quarter: 2015Q3

REPORT INFORMATION
  Report Type: Spontaneous
  Country: CL (occurrence: CL)
  Receive Date: 20150821
  Receipt Date: 20150821
  Transmission Date: 20151125
  Serious: Yes (Other)
  Sender: FDA-Public Use
  Company Number: CL-CIPLA LTD.-2015CL06693

PATIENT

DRUGS (1)
  1. TOPIRAMATE. [Suspect]
     Active Substance: TOPIRAMATE
     Indication: SLEEP-RELATED EATING DISORDER
     Dosage: UNK
     Route: 065

REACTIONS (3)
  - Disease recurrence [Unknown]
  - Adverse event [Unknown]
  - Affective disorder [Unknown]
